FAERS Safety Report 6771863-X (Version None)
Quarter: 2010Q2

REPORT INFORMATION
  Report Type: 
  Country: None (occurrence: None)
  Receive Date: 20100616
  Receipt Date: 20100222
  Transmission Date: 20101027
  Serious: No
  Sender: FDA-Public Use
  Company Number: US-ASTRAZENECA-2010SE07610

PATIENT
  Sex: Female

DRUGS (4)
  1. ENTOCORT EC [Suspect]
     Indication: IRRITABLE BOWEL SYNDROME
     Route: 048
     Dates: start: 20080101
  2. NEXIUM [Concomitant]
  3. ATIVAN [Concomitant]
  4. ELAVIL [Concomitant]

REACTIONS (5)
  - ANAL FISSURE [None]
  - ANXIETY [None]
  - DIARRHOEA [None]
  - FEELING COLD [None]
  - RECTAL HAEMORRHAGE [None]
